FAERS Safety Report 19812351 (Version 1)
Quarter: 2021Q3

REPORT INFORMATION
  Report Type: Spontaneous
  Country: JP (occurrence: JP)
  Receive Date: 20210909
  Receipt Date: 20210909
  Transmission Date: 20211014
  Serious: Yes (Death, Life-Threatening, Other)
  Sender: FDA-Public Use
  Company Number: JP-ACCORD-237677

PATIENT
  Age: 63 Year
  Sex: Male
  Weight: 46 kg

DRUGS (10)
  1. LEVODOPA [Concomitant]
     Active Substance: LEVODOPA
     Route: 048
  2. AMANTADINE. [Concomitant]
     Active Substance: AMANTADINE HYDROCHLORIDE
     Route: 048
  3. ROPINIROLE/ROPINIROLE HYDROCHLORIDE [Suspect]
     Active Substance: ROPINIROLE HYDROCHLORIDE
     Indication: PRODUCT USED FOR UNKNOWN INDICATION
     Route: 048
  4. ENTACAPONE. [Concomitant]
     Active Substance: ENTACAPONE
     Route: 048
  5. ZONISAMIDE. [Concomitant]
     Active Substance: ZONISAMIDE
     Route: 048
  6. DUTASTERIDE. [Concomitant]
     Active Substance: DUTASTERIDE
     Route: 048
  7. SILODOSIN. [Concomitant]
     Active Substance: SILODOSIN
     Route: 048
  8. NITRAZEPAM [Concomitant]
     Active Substance: NITRAZEPAM
     Route: 048
  9. MAGNESIUM OXIDE. [Concomitant]
     Active Substance: MAGNESIUM OXIDE
     Route: 048
  10. TOCOPHEROL [Concomitant]
     Active Substance: TOCOPHEROL
     Route: 048

REACTIONS (6)
  - Toxicity to various agents [Fatal]
  - Shock [Fatal]
  - Cerebral haematoma [Fatal]
  - Cerebral haemorrhage [Fatal]
  - Arrhythmia [Fatal]
  - Benign prostatic hyperplasia [Fatal]
